FAERS Safety Report 7374801-4 (Version None)
Quarter: 2011Q1

REPORT INFORMATION
  Report Type: 
  Country: None (occurrence: None)
  Receive Date: 20110325
  Receipt Date: 20101122
  Transmission Date: 20110831
  Serious: No
  Sender: FDA-Public Use
  Company Number: US-MYLANLABS-2010S1021690

PATIENT
  Sex: Female

DRUGS (8)
  1. FENTANYL-100 [Suspect]
     Dosage: CHANGED Q72H
     Route: 062
     Dates: start: 20101028, end: 20101118
  2. NEURONTIN [Concomitant]
  3. MESTINON [Concomitant]
  4. TRAZODONE [Concomitant]
     Indication: INSOMNIA
  5. KLONOPIN [Concomitant]
  6. SPIRIVA [Concomitant]
  7. FENTANYL-100 [Suspect]
     Indication: PAIN
     Dosage: CHANGED Q72H
     Route: 062
     Dates: start: 20101008, end: 20101020
  8. ADVAIR DISKUS 100/50 [Concomitant]

REACTIONS (6)
  - SENSATION OF HEAVINESS [None]
  - TOOTHACHE [None]
  - DIARRHOEA [None]
  - PAIN IN EXTREMITY [None]
  - DYSPNOEA [None]
  - HEADACHE [None]
